FAERS Safety Report 17621527 (Version 2)
Quarter: 2020Q2

REPORT INFORMATION
  Report Type: Spontaneous
  Country: US (occurrence: US)
  Receive Date: 20200403
  Receipt Date: 20200420
  Transmission Date: 20200713
  Serious: No
  Sender: FDA-Public Use
  Company Number: US-CELGENEUS-USA-20200309334

PATIENT
  Sex: Female

DRUGS (30)
  1. CLOBETASOL [Concomitant]
     Active Substance: CLOBETASOL
     Indication: RASH
     Route: 061
     Dates: start: 20160125
  2. XANAX [Concomitant]
     Active Substance: ALPRAZOLAM
     Indication: PRODUCT USED FOR UNKNOWN INDICATION
     Route: 065
  3. ABILIFY [Concomitant]
     Active Substance: ARIPIPRAZOLE
     Indication: PRODUCT USED FOR UNKNOWN INDICATION
     Route: 065
  4. EUCRISA [Concomitant]
     Active Substance: CRISABOROLE
     Indication: DERMATITIS PSORIASIFORM
     Route: 061
  5. HALOBETASOL PROPIONATE. [Concomitant]
     Active Substance: HALOBETASOL PROPIONATE
     Indication: DERMATITIS PSORIASIFORM
  6. LCD [Concomitant]
     Indication: ECZEMA
     Route: 065
  7. TRIAMCINOLONE [Concomitant]
     Active Substance: TRIAMCINOLONE
     Indication: RASH
     Route: 065
  8. COCONUT OIL [Concomitant]
     Active Substance: COCONUT OIL
     Indication: RASH
     Route: 065
  9. AMLACTIN [Concomitant]
     Active Substance: AMMONIUM LACTATE
     Indication: DERMATITIS PSORIASIFORM
  10. HALOBETASOL PROPIONATE. [Concomitant]
     Active Substance: HALOBETASOL PROPIONATE
     Indication: PSORIASIS
     Route: 061
  11. LCD [Concomitant]
     Indication: DERMATITIS PSORIASIFORM
  12. OLUX [Concomitant]
     Active Substance: CLOBETASOL PROPIONATE
     Indication: PSORIASIS
     Route: 061
     Dates: start: 20190926
  13. HALOBETASOL PROPIONATE. [Concomitant]
     Active Substance: HALOBETASOL PROPIONATE
     Indication: SEBORRHOEIC DERMATITIS
  14. MOMETASONE [Concomitant]
     Active Substance: MOMETASONE
     Indication: RASH
     Route: 065
  15. CALCIPOTRIENE. [Concomitant]
     Active Substance: CALCIPOTRIENE
     Indication: DERMATITIS PSORIASIFORM
  16. OTEZLA [Suspect]
     Active Substance: APREMILAST
     Indication: PSORIASIS
     Dosage: 60 MILLIGRAM
     Route: 048
     Dates: start: 20190926
  17. AMLACTIN [Concomitant]
     Active Substance: AMMONIUM LACTATE
     Indication: ECZEMA
     Route: 061
  18. HALOBETASOL PROPIONATE. [Concomitant]
     Active Substance: HALOBETASOL PROPIONATE
     Indication: ECZEMA
  19. RITALIN [Concomitant]
     Active Substance: METHYLPHENIDATE HYDROCHLORIDE
     Indication: PRODUCT USED FOR UNKNOWN INDICATION
     Route: 065
  20. CALCIPOTRIENE. [Concomitant]
     Active Substance: CALCIPOTRIENE
     Indication: PSORIASIS
     Route: 061
     Dates: start: 20170815
  21. CLOBETASOL [Concomitant]
     Active Substance: CLOBETASOL
     Indication: DERMATITIS
  22. CLOBETASOL [Concomitant]
     Active Substance: CLOBETASOL
     Indication: DERMATITIS PSORIASIFORM
  23. LITHIUM CITRATE. [Concomitant]
     Active Substance: LITHIUM CITRATE
     Indication: PRODUCT USED FOR UNKNOWN INDICATION
     Route: 065
  24. LAMICTAL [Concomitant]
     Active Substance: LAMOTRIGINE
     Indication: PRODUCT USED FOR UNKNOWN INDICATION
     Route: 065
  25. CALCIPOTRIENE. [Concomitant]
     Active Substance: CALCIPOTRIENE
     Indication: ECZEMA
  26. LCD [Concomitant]
     Indication: SEBORRHOEIC DERMATITIS
  27. LCD [Concomitant]
     Indication: PSORIASIS
  28. ALLEGRA [Concomitant]
     Active Substance: FEXOFENADINE HYDROCHLORIDE
     Indication: DERMATITIS PSORIASIFORM
     Route: 048
  29. KETOCONAZOLE. [Concomitant]
     Active Substance: KETOCONAZOLE
     Indication: SEBORRHOEIC DERMATITIS
     Route: 065
  30. DEXAMETHASONE. [Concomitant]
     Active Substance: DEXAMETHASONE
     Indication: RASH
     Route: 065

REACTIONS (4)
  - Nausea [Not Recovered/Not Resolved]
  - Diarrhoea [Recovered/Resolved]
  - Psoriasis [Not Recovered/Not Resolved]
  - Headache [Recovered/Resolved]

NARRATIVE: CASE EVENT DATE: 2019
